FAERS Safety Report 12898425 (Version 3)
Quarter: 2016Q4

REPORT INFORMATION
  Report Type: Spontaneous
  Country: DK (occurrence: DK)
  Receive Date: 20161031
  Receipt Date: 20161202
  Transmission Date: 20170207
  Serious: Yes (Hospitalization)
  Sender: FDA-Public Use
  Company Number: DK-009507513-1610DNK010407

PATIENT
  Age: 35 Year
  Sex: Female
  Weight: 62 kg

DRUGS (2)
  1. NEXPLANON [Suspect]
     Active Substance: ETONOGESTREL
     Indication: CONTRACEPTION
     Dosage: UNK
     Route: 058
     Dates: start: 20130905, end: 20160914
  2. SERTRALINE [Concomitant]
     Active Substance: SERTRALINE HYDROCHLORIDE
     Indication: BORDERLINE PERSONALITY DISORDER
     Dosage: UNK
     Dates: start: 201305

REACTIONS (2)
  - Anxiety [Recovered/Resolved]
  - Libido decreased [Recovered/Resolved]

NARRATIVE: CASE EVENT DATE: 201310
